FAERS Safety Report 20954374 (Version 2)
Quarter: 2022Q3

REPORT INFORMATION
  Report Type: Spontaneous
  Country: JP (occurrence: JP)
  Receive Date: 20220614
  Receipt Date: 20220824
  Transmission Date: 20221026
  Serious: Yes (Hospitalization, Other)
  Sender: FDA-Public Use
  Company Number: JP-MSD-2205JPN001853J

PATIENT
  Age: 52 Year
  Sex: Male
  Weight: 42 kg

DRUGS (1)
  1. KEYTRUDA [Suspect]
     Active Substance: PEMBROLIZUMAB
     Indication: Oropharyngeal cancer stage IV
     Dosage: 400 MILLIGRAM, ONCE EVERY 6 WEEKS
     Route: 041
     Dates: start: 20220318, end: 20220318

REACTIONS (1)
  - Colitis ulcerative [Recovering/Resolving]

NARRATIVE: CASE EVENT DATE: 20220301
